FAERS Safety Report 9735882 (Version 2)
Quarter: 2013Q4

REPORT INFORMATION
  Report Type: Spontaneous
  Country: US (occurrence: US)
  Receive Date: 20131206
  Receipt Date: 20131206
  Transmission Date: 20140711
  Serious: No
  Sender: FDA-Public Use
  Company Number: US-GILEAD-2009-0023780

PATIENT
  Age: 59 Year
  Sex: Male

DRUGS (6)
  1. LETAIRIS [Suspect]
     Route: 048
  2. PRAVASTATIN [Concomitant]
  3. PREDNISONE [Concomitant]
     Indication: CHRONIC OBSTRUCTIVE PULMONARY DISEASE
  4. ATENOLOL [Concomitant]
  5. PLAVIX [Concomitant]
  6. RANITIDINE [Concomitant]

REACTIONS (3)
  - Tinnitus [Not Recovered/Not Resolved]
  - Arthralgia [Not Recovered/Not Resolved]
  - Headache [Not Recovered/Not Resolved]
